FAERS Safety Report 7518584-3 (Version None)
Quarter: 2011Q2

REPORT INFORMATION
  Report Type: 
  Country: None (occurrence: None)
  Receive Date: 20110523
  Receipt Date: 20110506
  Transmission Date: 20111010
  Serious: Yes (Life-Threatening, Hospitalization, Other)
  Sender: FDA-Public Use
  Company Number: AUR-APL-2011-01606

PATIENT
  Age: 55 Year
  Sex: Male

DRUGS (8)
  1. ALLOPURINOL [Concomitant]
  2. ADALAT [Concomitant]
  3. METOPROLOL [Concomitant]
  4. METFORMIN HCL [Suspect]
     Dosage: 850 MG - TID- ORAL
     Route: 048
  5. LIPITOR [Concomitant]
  6. IRBESARTAN AND HYDROCHLOROTHIAZIDE [Concomitant]
  7. ASPIRIN [Concomitant]
  8. DIPYRIDAMOLE [Concomitant]

REACTIONS (5)
  - ACUTE PRERENAL FAILURE [None]
  - DIARRHOEA [None]
  - DIALYSIS [None]
  - GENERAL PHYSICAL HEALTH DETERIORATION [None]
  - LACTIC ACIDOSIS [None]
